FAERS Safety Report 15057185 (Version 1)
Quarter: 2018Q2

REPORT INFORMATION
  Report Type: Spontaneous
  Country: US (occurrence: US)
  Receive Date: 20180604
  Receipt Date: 20180604
  Transmission Date: 20180711
  Serious: No
  Sender: FDA-Public Use
  Company Number: None

PATIENT
  Age: 60 Year
  Sex: Female

DRUGS (1)
  1. CAPECITABINE TAB 500MG [Suspect]
     Active Substance: CAPECITABINE
     Dates: start: 20180411, end: 20180604

REACTIONS (3)
  - Faeces discoloured [None]
  - Abdominal pain [None]
  - Dyschezia [None]

NARRATIVE: CASE EVENT DATE: 20180525
